FAERS Safety Report 6462064-3 (Version None)
Quarter: 2009Q4

REPORT INFORMATION
  Report Type: 
  Country: None (occurrence: None)
  Receive Date: 20091130
  Receipt Date: 20091113
  Transmission Date: 20100525
  Serious: Yes (Other)
  Sender: FDA-Public Use
  Company Number: PHHY2009CA50078

PATIENT
  Sex: Female

DRUGS (3)
  1. EXJADE [Suspect]
     Indication: MYELODYSPLASTIC SYNDROME
     Dosage: 500 MG, QD
     Route: 048
     Dates: start: 20090801
  2. DILTIAZEM [Concomitant]
  3. RABEPRAZOLE [Concomitant]

REACTIONS (5)
  - BLOOD IRON INCREASED [None]
  - EXFOLIATIVE RASH [None]
  - LIVER FUNCTION TEST ABNORMAL [None]
  - NAIL DISORDER [None]
  - NAUSEA [None]
